FAERS Safety Report 9348226 (Version 1)
Quarter: 2013Q2

REPORT INFORMATION
  Report Type: Spontaneous
  Country: US (occurrence: US)
  Receive Date: 20130614
  Receipt Date: 20130614
  Transmission Date: 20140414
  Serious: Yes (Hospitalization, Other)
  Sender: FDA-Public Use
  Company Number: US-BAYER-2013-071025

PATIENT
  Age: 19 Year
  Sex: Female

DRUGS (56)
  1. YAZ [Suspect]
  2. YASMIN [Suspect]
  3. GIANVI [Suspect]
  4. LAMICTAL [Concomitant]
     Dosage: 150 MG, BID
     Route: 048
  5. LUVOX [Concomitant]
     Dosage: 100 MG, DAILY
     Route: 048
  6. PRILOSEC [Concomitant]
     Dosage: 40 MG, DAILY
  7. MAG-OX [Concomitant]
     Dosage: 250 MG,NIGHTLLY
     Route: 048
  8. VALTREX [Concomitant]
     Dosage: 500 MG, BID
  9. XANAX [Concomitant]
     Dosage: 1 MG, PRN
     Route: 048
  10. RISPERIDONE [Concomitant]
     Dosage: 3 MG, NIGHTLY
     Route: 048
  11. VITAMIN B12 [Concomitant]
     Dosage: UNKNOWN STRENGTH DAILY
     Route: 060
  12. MULTIVITAMIN [Concomitant]
     Dosage: 1 TABLET DAILY
     Route: 048
  13. PROCHLORPERAZINE [Concomitant]
     Dosage: 10 MG, 1 TABLET EVERY 8 HOURS
     Route: 048
  14. NAPROSYN [Concomitant]
     Dosage: 500 MG, UNK
  15. VICKS 44 [Concomitant]
     Dosage: UNK UNK, PRN
  16. DOCUSATE SODIUM [Concomitant]
     Dosage: 1 CAPSULE DAILY
     Route: 048
  17. ZOFRAN [Concomitant]
     Dosage: 8 MG, PRN
  18. SERTRALINE [Concomitant]
  19. PHENERGAN [Concomitant]
     Dosage: 25 MG, 1-2 PRN
     Route: 048
  20. NORTRIPTYLINE [Concomitant]
  21. LORTAB [Concomitant]
     Dosage: 7.5MG-325MG 1 EVERY 6 HOURS
  22. SYNTHROID [Concomitant]
  23. CLARITIN [Concomitant]
     Dosage: 10 MG,1 TABLET ONCE A DAY
  24. TOPIRAMATE [Concomitant]
     Dosage: 1 TABLET ONCE A DAY
  25. ZITHROMAX [Concomitant]
     Dosage: 250 MG, 1 A DAY FOR 5 DAYS
  26. DIFLUCAN [Concomitant]
     Dosage: 150 MG, ONCE A DAY FOR 3 DOSES
     Route: 048
  27. IBUPROFEN [Concomitant]
     Dosage: 400 MG, UNK
  28. NITROFURAN [Concomitant]
     Dosage: 100 MG, UNK
  29. PHENAZOPYRIDINE [Concomitant]
     Dosage: 200 MG, UNK
  30. HYDROCODONE W/APAP [Concomitant]
     Dosage: 7.5-325
  31. PROMETHAZINE [Concomitant]
     Dosage: 25 MG, UNK
  32. FLUVOXAMINE MALEATE [Concomitant]
     Dosage: 50 MG, UNK
  33. PRENATAL VITAMINS [Concomitant]
  34. AMOXICILLIN W/CLAVULANIC ACID [Concomitant]
     Dosage: 500/125 TABLETS
  35. CETIRIZINE [Concomitant]
     Dosage: 10 MG, TABLET
  36. ALPRAZOLAM [Concomitant]
     Dosage: 0.5 MG, UNK
  37. PREDNISONE [Concomitant]
     Dosage: 20 MG, UNK
  38. CYCLOBENZAPRINE [Concomitant]
     Dosage: 10 MG, TABLET
  39. LAMOTRIGINE [Concomitant]
     Dosage: 150 MG, 1 TABLET BID
     Route: 048
  40. TRAMADOL HYDROCHLORIDE [Concomitant]
     Dosage: 50 MG, UNK
  41. CEFDINIR [Concomitant]
     Dosage: 300 MG, UNK
  42. MECLIZINE [Concomitant]
     Dosage: 25 MG, UNK
  43. CIPROFLOXACIN [Concomitant]
     Dosage: 500 MG, 1 TABLET BID
     Route: 048
  44. LIDOCAINE VISCOUS [Concomitant]
     Indication: PAIN MANAGEMENT
     Dosage: 2 %, GARGLE AND SPIT 10 MLA 4 TIMES DAILY AS NEEDED
     Route: 048
  45. ETODOLAC [Concomitant]
     Indication: PAIN
     Dosage: 300 MG, 1 CAPSULE TWO TO THREE TIMES DAILY
     Route: 048
  46. FLUTICASONE [Concomitant]
     Dosage: 50 ?G, TWO SPRAYS ONCE DAILY
     Route: 045
  47. FLUCONAZOLE [Concomitant]
     Dosage: 150 MG, ONE TABLET EVERY DAY
     Route: 048
  48. POLYETHYLENE GLYCOL [Concomitant]
     Dosage: 17 G WITH LIQUID
     Route: 048
  49. AMOXICILLIN [Concomitant]
     Dosage: 500 MG, 1 CAPSULE THREE TIMES DAILY FOR 10 DAYS
     Route: 048
  50. DICLOFENAC [Concomitant]
     Indication: PAIN
     Dosage: 75 MG,1 TABLET TWICE DAILY
     Route: 048
  51. ACETAMINOPHEN W/HYDROCODONE [Concomitant]
     Dosage: 7.5-500 MG, 1 TABLET EVERY NIGHT AT BEDTIME
     Route: 048
  52. OMEPRAZOLE [Concomitant]
  53. MELATONIN [Concomitant]
  54. MORPHINE [Concomitant]
  55. HYDROCODONE [Concomitant]
     Indication: PAIN
  56. TORADOL [Concomitant]

REACTIONS (3)
  - Thrombophlebitis superficial [None]
  - Thrombophlebitis superficial [None]
  - Jugular vein thrombosis [None]
